FAERS Safety Report 7643202-3 (Version None)
Quarter: 2011Q3

REPORT INFORMATION
  Report Type: 
  Country: None (occurrence: None)
  Receive Date: 20110729
  Receipt Date: 20110718
  Transmission Date: 20111222
  Serious: No
  Sender: FDA-Public Use
  Company Number: US-BIOGENIDEC-2010BI018868

PATIENT
  Sex: Female

DRUGS (1)
  1. TYSABRI [Suspect]
     Indication: MULTIPLE SCLEROSIS
     Route: 042
     Dates: start: 20100528

REACTIONS (12)
  - PRODUCTIVE COUGH [None]
  - WEIGHT INCREASED [None]
  - PARAESTHESIA [None]
  - HEADACHE [None]
  - ARTHRALGIA [None]
  - PAIN IN EXTREMITY [None]
  - HAEMOGLOBIN DECREASED [None]
  - THYROID FUNCTION TEST ABNORMAL [None]
  - FEELING COLD [None]
  - PLATELET COUNT DECREASED [None]
  - PAIN [None]
  - FATIGUE [None]
